FAERS Safety Report 7500994-1 (Version None)
Quarter: 2011Q2

REPORT INFORMATION
  Report Type: 
  Country: None (occurrence: None)
  Receive Date: 20110524
  Receipt Date: 20110518
  Transmission Date: 20111010
  Serious: Yes (Other)
  Sender: FDA-Public Use
  Company Number: US-PFIZER INC-2011107636

PATIENT
  Sex: Female
  Weight: 67.12 kg

DRUGS (5)
  1. VICODIN [Concomitant]
     Dosage: DAILY
     Route: 048
  2. ZYVOX [Suspect]
     Indication: CELLULITIS
     Dosage: 600 MG, 3X/DAY
     Route: 048
     Dates: start: 20110423, end: 20110514
  3. DOXYCYCLINE [Concomitant]
     Dosage: 150 MG, DAILY
     Route: 048
  4. ZYVOX [Suspect]
     Indication: MYOSITIS
  5. VALIUM [Concomitant]
     Dosage: 5 MG, AS NEEDED
     Route: 048

REACTIONS (3)
  - MYALGIA [None]
  - PLATELET COUNT DECREASED [None]
  - ARTHRALGIA [None]
